FAERS Safety Report 20588964 (Version 1)
Quarter: 2022Q1

REPORT INFORMATION
  Report Type: Other
  Country: None (occurrence: US)
  Receive Date: 20220314
  Receipt Date: 20220314
  Transmission Date: 20220423
  Serious: Yes (Other)
  Sender: FDA-Public Use
  Company Number: US-Appco Pharma LLC-2126745

PATIENT
  Age: 74 Year
  Sex: Female

DRUGS (3)
  1. CHLORTHALIDONE [Suspect]
     Active Substance: CHLORTHALIDONE
     Indication: Hypertension
     Route: 065
  2. AMILORIDE HYDROCLORIDE [Suspect]
     Active Substance: AMILORIDE HYDROCHLORIDE
     Route: 065
  3. AMLODIPINE AND OLMESARTAN MEDOXOMIL [Suspect]
     Active Substance: AMLODIPINE BESYLATE\OLMESARTAN MEDOXOMIL
     Route: 065

REACTIONS (4)
  - Overdose [Unknown]
  - Drug interaction [Unknown]
  - Hypokalaemia [Unknown]
  - Hypertension [Unknown]
